FAERS Safety Report 4983796-X (Version None)
Quarter: 2006Q2

REPORT INFORMATION
  Report Type: 
  Country: None (occurrence: None)
  Receive Date: 20060426
  Receipt Date: 20060314
  Transmission Date: 20061013
  Serious: Yes (Hospitalization)
  Sender: FDA-Public Use
  Company Number: UY-ABBOTT-06P-168-0328605-00

PATIENT
  Age: 42 Year
  Sex: Male

DRUGS (4)
  1. KALETRA [Suspect]
     Indication: HIV INFECTION
     Dosage: 400/100
     Route: 048
     Dates: start: 20050901, end: 20060313
  2. ERGOTAMINE [Suspect]
     Indication: MIGRAINE
     Route: 048
     Dates: start: 20060311
  3. ZIDOVUDINE [Concomitant]
     Indication: HIV INFECTION
     Route: 048
     Dates: start: 20050901
  4. LAMIVUDINE [Concomitant]
     Indication: HIV INFECTION
     Route: 048
     Dates: start: 20050901

REACTIONS (5)
  - CYANOSIS [None]
  - HYPOAESTHESIA [None]
  - ISCHAEMIC LIMB PAIN [None]
  - PERIPHERAL COLDNESS [None]
  - PULSE ABNORMAL [None]
